FAERS Safety Report 8980461 (Version 2)
Quarter: 2013Q1

REPORT INFORMATION
  Report Type: Report from Study
  Country: DE (occurrence: DE)
  Receive Date: 20121221
  Receipt Date: 20130213
  Transmission Date: 20140127
  Serious: Yes (Hospitalization)
  Sender: FDA-Public Use
  Company Number: PHHO2012DE016779

PATIENT
  Age: 69 Year
  Sex: Female
  Weight: 71 kg

DRUGS (5)
  1. FLUOROURACIL [Suspect]
     Dosage: 100 MG/M2
     Route: 042
     Dates: start: 20110907, end: 20111221
  2. NO TREATMENT RECEIVED [Suspect]
     Indication: BREAST CANCER
     Dosage: NO TREATMENT
  3. EPIRUBICIN [Suspect]
     Dosage: 100 MG/M2
     Route: 042
     Dates: start: 20110907, end: 20111221
  4. ENDOXAN [Suspect]
     Indication: BREAST CANCER
     Dosage: 500 MG/M2
     Route: 042
     Dates: start: 20110907, end: 20111221
  5. HERCEPTIN [Concomitant]
     Indication: BREAST CANCER
     Dosage: 426 MG, QW3
     Route: 042
     Dates: start: 20120201

REACTIONS (2)
  - Ovarian cancer [Not Recovered/Not Resolved]
  - Thrombosis [Not Recovered/Not Resolved]
